FAERS Safety Report 16107605 (Version 1)
Quarter: 2019Q1

REPORT INFORMATION
  Report Type: Spontaneous
  Country: US (occurrence: US)
  Receive Date: 20190322
  Receipt Date: 20190322
  Transmission Date: 20190418
  Serious: No
  Sender: FDA-Public Use
  Company Number: US-IPSEN BIOPHARMACEUTICALS, INC.-2019-04244

PATIENT
  Age: 70 Year
  Sex: Female

DRUGS (7)
  1. RESTYLANE [Suspect]
     Active Substance: HYALURONIC ACID
     Indication: PRODUCT USED FOR UNKNOWN INDICATION
     Dates: start: 20190208
  2. HYDROCHLOROTHIAZIDE. [Concomitant]
     Active Substance: HYDROCHLOROTHIAZIDE
  3. DYSPORT [Suspect]
     Active Substance: ABOBOTULINUMTOXINA
     Indication: SKIN WRINKLING
     Route: 030
     Dates: start: 20190207, end: 20190207
  4. MONTELUKAST SODIUM. [Concomitant]
     Active Substance: MONTELUKAST SODIUM
  5. ALLOPURINOL. [Concomitant]
     Active Substance: ALLOPURINOL
  6. DYSPORT [Suspect]
     Active Substance: ABOBOTULINUMTOXINA
     Indication: OFF LABEL USE
  7. DYSPORT [Suspect]
     Active Substance: ABOBOTULINUMTOXINA
     Indication: SKIN WRINKLING

REACTIONS (4)
  - Swelling [Unknown]
  - Ear disorder [Unknown]
  - Off label use [Unknown]
  - Tenderness [Unknown]

NARRATIVE: CASE EVENT DATE: 20190208
